FAERS Safety Report 6914141-8 (Version None)
Quarter: 2010Q3

REPORT INFORMATION
  Report Type: 
  Country: None (occurrence: None)
  Receive Date: 20100809
  Receipt Date: 20100728
  Transmission Date: 20110219
  Serious: Yes (Other)
  Sender: FDA-Public Use
  Company Number: US-PFIZER INC-2010095585

PATIENT
  Sex: Male
  Weight: 90.703 kg

DRUGS (1)
  1. CAVERJECT [Suspect]
     Indication: ERECTILE DYSFUNCTION
     Dosage: UNK, AS NEEDED
     Dates: start: 20100601

REACTIONS (6)
  - ADMINISTRATION SITE PAIN [None]
  - DRUG DISPENSING ERROR [None]
  - INJECTION SITE HAEMORRHAGE [None]
  - INJECTION SITE IRRITATION [None]
  - PENILE SWELLING [None]
  - PENIS DISORDER [None]
